FAERS Safety Report 8255907-4 (Version None)
Quarter: 2012Q2

REPORT INFORMATION
  Report Type: 
  Country: None (occurrence: None)
  Receive Date: 20120403
  Receipt Date: 20120326
  Transmission Date: 20120825
  Serious: Yes (Other)
  Sender: FDA-Public Use
  Company Number: US-AMGEN-USASP2012019634

PATIENT
  Age: 60 Year
  Sex: Female

DRUGS (2)
  1. ENBREL [Suspect]
     Indication: RHEUMATOID ARTHRITIS
     Dosage: 50 MG, QWK
     Dates: start: 20110605
  2. TREXALL [Concomitant]
     Dosage: 5 TABLETS WEEKLY

REACTIONS (5)
  - RENAL CYST [None]
  - HAEMANGIOMA OF LIVER [None]
  - METASTASES TO SPLEEN [None]
  - METASTASES TO LIVER [None]
  - HAEMANGIOMA OF SPLEEN [None]
